FAERS Safety Report 6092021-0 (Version None)
Quarter: 2009Q1

REPORT INFORMATION
  Report Type: 
  Country: None (occurrence: None)
  Receive Date: 20090225
  Receipt Date: 20090212
  Transmission Date: 20090719
  Serious: Yes (Other)
  Sender: FDA-Public Use
  Company Number: US-ELI_LILLY_AND_COMPANY-US200902002820

PATIENT
  Sex: Female

DRUGS (2)
  1. EVISTA [Suspect]
     Indication: BONE DISORDER
     Dosage: UNK, UNKNOWN
     Route: 065
  2. LOVASTATIN [Concomitant]
     Dosage: UNK, UNKNOWN
     Route: 065

REACTIONS (9)
  - BLOOD CHOLESTEROL INCREASED [None]
  - BREAST CANCER [None]
  - EXTERNAL EAR PAIN [None]
  - OESOPHAGEAL PAIN [None]
  - ORAL DISORDER [None]
  - PAIN [None]
  - PAIN IN EXTREMITY [None]
  - PAIN IN JAW [None]
  - TOOTH DISORDER [None]
